FAERS Safety Report 15012044 (Version 1)
Quarter: 2018Q2

REPORT INFORMATION
  Report Type: Spontaneous
  Country: US (occurrence: US)
  Receive Date: 20180529
  Receipt Date: 20180529
  Transmission Date: 20180711
  Serious: Yes (Hospitalization)
  Sender: FDA-Public Use
  Company Number: None

PATIENT
  Age: 64 Year
  Sex: Female

DRUGS (9)
  1. COPAXONE [Concomitant]
     Active Substance: GLATIRAMER ACETATE
     Dates: start: 20180526
  2. GLATOPA [Suspect]
     Active Substance: GLATIRAMER ACETATE
     Indication: MULTIPLE SCLEROSIS
     Route: 058
     Dates: start: 20180203
  3. CARBAMAZEPIN [Concomitant]
     Active Substance: CARBAMAZEPINE
     Dates: start: 20180526
  4. DEPOKOTE [Concomitant]
     Dates: start: 20180526
  5. LYRICA [Concomitant]
     Active Substance: PREGABALIN
     Dates: start: 20180526
  6. GABAPENTIN. [Concomitant]
     Active Substance: GABAPENTIN
     Dates: start: 20180526
  7. BACLOFEN. [Concomitant]
     Active Substance: BACLOFEN
     Dates: start: 20180526
  8. EVISTA [Concomitant]
     Active Substance: RALOXIFENE HYDROCHLORIDE
     Dates: start: 20180526
  9. TOPAMAX [Concomitant]
     Active Substance: TOPIRAMATE
     Dates: start: 20180526

REACTIONS (6)
  - Urinary tract infection [None]
  - Hypersomnia [None]
  - Haemorrhage [None]
  - Memory impairment [None]
  - Fall [None]
  - Face injury [None]
